FAERS Safety Report 14691756 (Version 1)
Quarter: 2018Q1

REPORT INFORMATION
  Report Type: Report from Study
  Country: None (occurrence: US)
  Receive Date: 20180329
  Receipt Date: 20180329
  Transmission Date: 20180509
  Serious: Yes (Hospitalization, Other)
  Sender: FDA-Public Use
  Company Number: US-ABBVIE-17K-163-2097399-00

PATIENT
  Age: 47 Year
  Sex: Male
  Weight: 113.5 kg

DRUGS (4)
  1. TURMERIC [Concomitant]
     Active Substance: HERBALS\TURMERIC
     Indication: PSORIATIC ARTHROPATHY
  2. OMEPRAZOLE. [Concomitant]
     Active Substance: OMEPRAZOLE
     Indication: DYSPEPSIA
  3. HUMIRA [Suspect]
     Active Substance: ADALIMUMAB
     Indication: PSORIASIS
     Route: 058
     Dates: start: 2015, end: 201710
  4. HUMIRA [Suspect]
     Active Substance: ADALIMUMAB
     Indication: PSORIATIC ARTHROPATHY

REACTIONS (12)
  - Diverticular perforation [Recovered/Resolved]
  - Procedural pain [Recovering/Resolving]
  - Psoriasis [Recovering/Resolving]
  - Joint swelling [Recovering/Resolving]
  - Joint noise [Recovered/Resolved]
  - Gastrointestinal infection [Recovered/Resolved]
  - Joint injury [Not Recovered/Not Resolved]
  - Femur fracture [Recovered/Resolved]
  - Arthralgia [Recovering/Resolving]
  - White blood cell count increased [Recovered/Resolved]
  - Therapeutic response unexpected [Unknown]
  - Arthritis [Recovering/Resolving]

NARRATIVE: CASE EVENT DATE: 20170824
